FAERS Safety Report 15255576 (Version 2)
Quarter: 2018Q4

REPORT INFORMATION
  Report Type: Spontaneous
  Country: US (occurrence: US)
  Receive Date: 20180808
  Receipt Date: 20181023
  Transmission Date: 20190204
  Serious: Yes (Hospitalization, Other)
  Sender: FDA-Public Use
  Company Number: US-009507513-1808USA001079

PATIENT
  Age: 11 Year
  Sex: Male
  Weight: 77.1 kg

DRUGS (1)
  1. HYDROCORTONE [Suspect]
     Active Substance: HYDROCORTISONE
     Indication: CORTISOL DECREASED
     Dosage: UNK
     Route: 048

REACTIONS (2)
  - Adrenal insufficiency [Unknown]
  - Product dose omission [Unknown]
